FAERS Safety Report 18409516 (Version 9)
Quarter: 2022Q1

REPORT INFORMATION
  Report Type: Spontaneous
  Country: PT (occurrence: PT)
  Receive Date: 20201021
  Receipt Date: 20220316
  Transmission Date: 20220423
  Serious: Yes (Hospitalization, Other)
  Sender: FDA-Public Use
  Company Number: PT-ESTEVE-2020-07773

PATIENT
  Age: 26 Year
  Sex: Female

DRUGS (3)
  1. IBUPROFEN [Suspect]
     Active Substance: IBUPROFEN
     Indication: Analgesic therapy
     Dosage: 2 DOSAGE FORM, ONCE A DAY (600 MG, TWO TABLETS)
     Route: 048
  2. IBUPROFEN [Suspect]
     Active Substance: IBUPROFEN
     Dosage: 1200 MILLIGRAM, DAILY
     Route: 048
  3. IBUPROFEN [Suspect]
     Active Substance: IBUPROFEN
     Dosage: 600 MILLIGRAM, TWO TABLETS
     Route: 065

REACTIONS (3)
  - Immune thrombocytopenia [Recovered/Resolved]
  - Epistaxis [Recovering/Resolving]
  - Petechiae [Recovering/Resolving]
